FAERS Safety Report 8222403-X (Version None)
Quarter: 2012Q1

REPORT INFORMATION
  Report Type: 
  Country: None (occurrence: None)
  Receive Date: 20120320
  Receipt Date: 20120308
  Transmission Date: 20120608
  Serious: Yes (Hospitalization)
  Sender: FDA-Public Use
  Company Number: DE-PFIZER INC-2012047710

PATIENT
  Age: 58 Year
  Sex: Female
  Weight: 88 kg

DRUGS (5)
  1. CYCLOPHOSPHAMIDE [Suspect]
     Indication: BREAST CANCER
     Dosage: 1200 MG, 1X/DAY
     Route: 042
     Dates: start: 20101104, end: 20110217
  2. METOPROLOL [Concomitant]
     Indication: HYPERTENSION
     Dosage: UNK
     Route: 048
  3. RAMIPRIL [Concomitant]
     Indication: HYPERTENSION
     Dosage: UNK
     Route: 048
  4. AROMASIN [Suspect]
     Indication: BREAST CANCER
     Dosage: 25 MG, 1X/DAY
     Route: 048
     Dates: start: 20110408
  5. DOCETAXEL [Suspect]
     Indication: BREAST CANCER
     Dosage: 150 MG, 1X/DAY
     Route: 042
     Dates: start: 20101104, end: 20110217

REACTIONS (1)
  - BREAST CYST [None]
